FAERS Safety Report 19926888 (Version 1)
Quarter: 2021Q4

REPORT INFORMATION
  Report Type: Spontaneous
  Country: US (occurrence: US)
  Receive Date: 20211006
  Receipt Date: 20211006
  Transmission Date: 20220304
  Serious: Yes (Other)
  Sender: FDA-Public Use
  Company Number: US-PRINSTON PHARMACEUTICAL INC.-2021PRN00348

PATIENT
  Sex: Male

DRUGS (1)
  1. FUROSEMIDE [Suspect]
     Active Substance: FUROSEMIDE
     Dosage: 40 MG

REACTIONS (1)
  - Diabetes mellitus [Unknown]
